FAERS Safety Report 14444699 (Version 2)
Quarter: 2018Q1

REPORT INFORMATION
  Report Type: Report from Study
  Country: US (occurrence: US)
  Receive Date: 20180126
  Receipt Date: 20180215
  Transmission Date: 20180509
  Serious: Yes (Death)
  Sender: FDA-Public Use
  Company Number: US-ROCHE-2062558

PATIENT
  Age: 72 Year
  Sex: Male

DRUGS (2)
  1. LUCENTIS [Suspect]
     Active Substance: RANIBIZUMAB
     Indication: RETINAL VEIN OCCLUSION
     Dosage: ONGOING-UNKNOWN
     Route: 065
  2. LUCENTIS [Suspect]
     Active Substance: RANIBIZUMAB
     Indication: RETINAL NEOVASCULARISATION

REACTIONS (1)
  - Death [Fatal]

NARRATIVE: CASE EVENT DATE: 20170220
